FAERS Safety Report 17090629 (Version 1)
Quarter: 2019Q4

REPORT INFORMATION
  Report Type: Spontaneous
  Country: LB (occurrence: LB)
  Receive Date: 20191129
  Receipt Date: 20191129
  Transmission Date: 20200122
  Serious: Yes (Hospitalization, Other)
  Sender: FDA-Public Use
  Company Number: LB-AMGEN-LBNSP2019188843

PATIENT
  Age: 62 Year
  Sex: Male
  Weight: 54 kg

DRUGS (14)
  1. ZYLORIC [Concomitant]
     Active Substance: ALLOPURINOL
     Indication: PROPHYLAXIS
     Dosage: UNK, BID
     Dates: start: 201908, end: 201909
  2. SILOSIN [Concomitant]
     Dosage: UNK
  3. KYPROLIS [Suspect]
     Active Substance: CARFILZOMIB
     Dosage: 120 MILLIGRAM, THIRD WEEK 2 INJECTION
     Route: 042
     Dates: start: 201910
  4. EUTHYROX [Concomitant]
     Active Substance: LEVOTHYROXINE SODIUM
     Indication: HYPOTHYROIDISM
     Dosage: 25 MILLIGRAM, QD
     Dates: start: 201909
  5. KYPROLIS [Suspect]
     Active Substance: CARFILZOMIB
     Indication: PLASMA CELL MYELOMA
     Dosage: 60 MILLIGRAM, FIRST WEEK 1 INJECTION
     Route: 042
     Dates: start: 20190930, end: 201910
  6. MAGNESIUM [Concomitant]
     Active Substance: MAGNESIUM
     Dosage: UNK
  7. KYPROLIS [Suspect]
     Active Substance: CARFILZOMIB
     Dosage: 120 MILLIGRAM, FIRST WEEK 1 INJECTION; SECOND WEEK 2 INJECTION
     Route: 042
     Dates: start: 201910, end: 201910
  8. VITAMIN B6 [Concomitant]
     Active Substance: PYRIDOXINE HYDROCHLORIDE
     Dosage: UNK
  9. LASIX [Concomitant]
     Active Substance: FUROSEMIDE
     Dosage: 40 MILLIGRAM
  10. VALTREX [Concomitant]
     Active Substance: VALACYCLOVIR HYDROCHLORIDE
     Indication: ANTIVIRAL PROPHYLAXIS
     Dosage: 500 MILLIGRAM, BID
     Dates: start: 201907, end: 20191114
  11. FOLIC ACID. [Concomitant]
     Active Substance: FOLIC ACID
     Dosage: UNK
  12. CIALIS [Concomitant]
     Active Substance: TADALAFIL
     Dosage: UNK
  13. CIPRALEX [Concomitant]
     Active Substance: ESCITALOPRAM OXALATE
     Dosage: UNK
  14. PREDNISONE. [Concomitant]
     Active Substance: PREDNISONE
     Dosage: UNK

REACTIONS (7)
  - Peripheral swelling [Recovering/Resolving]
  - Pulmonary oedema [Recovering/Resolving]
  - Off label use [Unknown]
  - Back pain [Recovering/Resolving]
  - Platelet count decreased [Not Recovered/Not Resolved]
  - Haemoglobin decreased [Not Recovered/Not Resolved]
  - Pyrexia [Recovered/Resolved]

NARRATIVE: CASE EVENT DATE: 2019
